FAERS Safety Report 25028155 (Version 1)
Quarter: 2025Q1

REPORT INFORMATION
  Report Type: Spontaneous
  Country: US (occurrence: US)
  Receive Date: 20250301
  Receipt Date: 20250301
  Transmission Date: 20250408
  Serious: No
  Sender: SANOFI AVENTIS
  Company Number: US-SA-2025SA059040

PATIENT
  Age: 74 Year

DRUGS (1)
  1. DUPIXENT [Suspect]
     Active Substance: DUPILUMAB
     Indication: Dermatitis atopic
     Dosage: UNK UNK, QOW
     Route: 058
     Dates: start: 20250120

REACTIONS (5)
  - Inflammation [Unknown]
  - Peripheral swelling [Unknown]
  - Mobility decreased [Unknown]
  - Arthralgia [Unknown]
  - Rash [Recovering/Resolving]

NARRATIVE: CASE EVENT DATE: 20250101
